FAERS Safety Report 4430271-7 (Version None)
Quarter: 2004Q3

REPORT INFORMATION
  Report Type: 
  Country: None (occurrence: None)
  Receive Date: 20040820
  Receipt Date: 20040812
  Transmission Date: 20050211
  Serious: Yes (Death)
  Sender: FDA-Public Use
  Company Number: GB-GLAXOSMITHKLINE-B0342386A

PATIENT
  Age: 63 Year
  Sex: Male

DRUGS (8)
  1. PAROXETINE HCL [Suspect]
     Indication: DEPRESSION
     Route: 048
     Dates: start: 20040205, end: 20040501
  2. LOFEPRAMINE [Concomitant]
     Indication: DEPRESSION
     Dosage: 70MG PER DAY
     Route: 048
     Dates: start: 20040401
  3. DIAZEPAM [Concomitant]
     Route: 065
     Dates: start: 20040501
  4. TRIFLUOPERAZINE HCL [Concomitant]
     Route: 065
  5. EFFEXOR [Concomitant]
     Dosage: 75MG PER DAY
     Route: 065
  6. ACETAMINOPHEN [Concomitant]
     Indication: PAIN
     Route: 065
  7. CODEINE PHOSPHATE [Concomitant]
     Indication: PAIN
     Route: 065
  8. IBUPROFEN [Concomitant]
     Dosage: 400MG PER DAY
     Route: 065

REACTIONS (1)
  - COMPLETED SUICIDE [None]
